FAERS Safety Report 6256823-X (Version None)
Quarter: 2009Q3

REPORT INFORMATION
  Report Type: 
  Country: None (occurrence: None)
  Receive Date: 20090706
  Receipt Date: 20090625
  Transmission Date: 20100115
  Serious: Yes (Other)
  Sender: FDA-Public Use
  Company Number: PHEH2009US06665

PATIENT
  Sex: Male

DRUGS (2)
  1. ZOMETA [Suspect]
  2. REVLIMID [Suspect]
     Indication: MULTIPLE MYELOMA
     Dosage: 25 MG, QD
     Route: 048
     Dates: start: 20061117, end: 20090406

REACTIONS (5)
  - DEBRIDEMENT [None]
  - INFECTION [None]
  - ORAL CAVITY FISTULA [None]
  - OSTEONECROSIS [None]
  - TOOTH EXTRACTION [None]
